FAERS Safety Report 25934933 (Version 1)
Quarter: 2025Q4

REPORT INFORMATION
  Report Type: Spontaneous
  Country: US (occurrence: US)
  Receive Date: 20251017
  Receipt Date: 20251017
  Transmission Date: 20260117
  Serious: No
  Sender: LUNDBECK
  Company Number: US-LUNDBECK-DKLU4020003

PATIENT
  Age: 11 Year
  Sex: Female

DRUGS (4)
  1. SABRIL [Suspect]
     Active Substance: VIGABATRIN
     Indication: Partial seizures
     Dosage: 1000 MILLIGRAM
     Route: 048
     Dates: start: 201711
  2. SABRIL [Suspect]
     Active Substance: VIGABATRIN
     Indication: Simple partial seizures
     Dosage: 750 MILLIGRAM EVERY AFTERNOON
     Route: 048
     Dates: start: 201711
  3. SABRIL [Suspect]
     Active Substance: VIGABATRIN
     Indication: Epilepsy
     Dosage: 750 MILLIGRAM
     Route: 048
     Dates: start: 201711
  4. SIROLIMUS [Concomitant]
     Active Substance: SIROLIMUS
     Indication: Product used for unknown indication

REACTIONS (1)
  - Vomiting [Unknown]
